FAERS Safety Report 20793576 (Version 2)
Quarter: 2022Q2

REPORT INFORMATION
  Report Type: Spontaneous
  Country: US (occurrence: US)
  Receive Date: 20220506
  Receipt Date: 20220610
  Transmission Date: 20220721
  Serious: No
  Sender: FDA-Public Use
  Company Number: US-009507513-2204USA006977

PATIENT
  Sex: Male

DRUGS (9)
  1. JANUMET [Suspect]
     Active Substance: METFORMIN HYDROCHLORIDE\SITAGLIPTIN PHOSPHATE
     Indication: Diabetes mellitus
     Dosage: 50/1000 MG, TWICE DAILY
     Route: 048
     Dates: start: 2020, end: 20220330
  2. GLIPIZIDE [Suspect]
     Active Substance: GLIPIZIDE
     Dosage: UNK
  3. METFORMIN [Suspect]
     Active Substance: METFORMIN HYDROCHLORIDE
     Dosage: 1000 MG, TWICE DAILY
     Dates: start: 20220401
  4. TRADJENTA [Suspect]
     Active Substance: LINAGLIPTIN
     Dosage: 5MG / ONCE DAILY
     Dates: start: 20220401
  5. SIMVASTATIN [Concomitant]
     Active Substance: SIMVASTATIN
     Dosage: 10 MG
  6. ACTOS [Concomitant]
     Active Substance: PIOGLITAZONE HYDROCHLORIDE
     Dosage: 45 MG/ ONCE A DAY
  7. CELEBREX [Concomitant]
     Active Substance: CELECOXIB
     Dosage: 100 MG
  8. ASPIRIN [Concomitant]
     Active Substance: ASPIRIN
     Dosage: 81 MG/ ONCE A DAY
  9. AZELASTINE HYDROCHLORIDE [Concomitant]
     Active Substance: AZELASTINE HYDROCHLORIDE
     Indication: Hypersensitivity
     Dosage: UNK
     Dates: start: 2022

REACTIONS (6)
  - Purpura [Not Recovered/Not Resolved]
  - Fall [Unknown]
  - Blood glucose increased [Unknown]
  - Hypersensitivity [Not Recovered/Not Resolved]
  - Hypoglycaemia [Unknown]
  - Inability to afford medication [Unknown]

NARRATIVE: CASE EVENT DATE: 20220101
